FAERS Safety Report 5623469-3 (Version None)
Quarter: 2008Q1

REPORT INFORMATION
  Report Type: 
  Country: None (occurrence: None)
  Receive Date: 20080212
  Receipt Date: 20080211
  Transmission Date: 20080703
  Serious: Yes (Hospitalization)
  Sender: FDA-Public Use
  Company Number: US-BRISTOL-MYERS SQUIBB COMPANY-14047831

PATIENT
  Age: 46 Year
  Sex: Female
  Weight: 102 kg

DRUGS (4)
  1. ABILIFY [Suspect]
     Indication: BIPOLAR DISORDER
  2. LITHIUM CITRATE [Concomitant]
  3. DEPAKOTE [Concomitant]
  4. SYNTHROID [Concomitant]

REACTIONS (8)
  - ALCOHOL INTOLERANCE [None]
  - CONSTIPATION [None]
  - DEHYDRATION [None]
  - FEELING ABNORMAL [None]
  - LOGORRHOEA [None]
  - PALPITATIONS [None]
  - TREMOR [None]
  - WEIGHT INCREASED [None]
